FAERS Safety Report 18740032 (Version 2)
Quarter: 2021Q2

REPORT INFORMATION
  Report Type: Spontaneous
  Country: US (occurrence: US)
  Receive Date: 20210114
  Receipt Date: 20210430
  Transmission Date: 20210717
  Serious: No
  Sender: FDA-Public Use
  Company Number: NVSC2021US004564

PATIENT
  Age: 71 Year
  Sex: Female

DRUGS (1)
  1. AMITRIPTYLINE HCL SANDOZ [Suspect]
     Active Substance: AMITRIPTYLINE HYDROCHLORIDE
     Indication: PRODUCT USED FOR UNKNOWN INDICATION
     Dosage: 50 MG, QHS
     Route: 065

REACTIONS (1)
  - Drug ineffective [Unknown]
